FAERS Safety Report 10330728 (Version 1)
Quarter: 2014Q3

REPORT INFORMATION
  Report Type: Spontaneous
  Country: US (occurrence: US)
  Receive Date: 20140722
  Receipt Date: 20140722
  Transmission Date: 20150326
  Serious: Yes (Hospitalization)
  Sender: FDA-Public Use
  Company Number: US-AMGEN INC.-USASP2014054498

PATIENT
  Age: 45 Year
  Sex: Female

DRUGS (1)
  1. ENBREL [Suspect]
     Active Substance: ETANERCEPT
     Indication: RHEUMATOID ARTHRITIS
     Dosage: 50 MG, UNK
     Route: 065
     Dates: start: 20140302

REACTIONS (6)
  - Injection site reaction [Unknown]
  - Injection site erythema [Unknown]
  - Hypersensitivity [Unknown]
  - Injection site pruritus [Unknown]
  - Pruritus [Unknown]
  - Injection site pain [Unknown]

NARRATIVE: CASE EVENT DATE: 2014
